FAERS Safety Report 23571413 (Version 1)
Quarter: 2024Q1

REPORT INFORMATION
  Report Type: Report from Study
  Country: IN (occurrence: IN)
  Receive Date: 20240227
  Receipt Date: 20240227
  Transmission Date: 20240409
  Serious: Yes (Death, Other)
  Sender: FDA-Public Use
  Company Number: IN-TAKEDA-2023TUS077264

PATIENT
  Age: 58 Year
  Sex: Female
  Weight: 48.6 kg

DRUGS (5)
  1. BRENTUXIMAB VEDOTIN [Suspect]
     Active Substance: BRENTUXIMAB VEDOTIN
     Indication: Anaplastic large cell lymphoma T- and null-cell types
     Dosage: 100 MILLIGRAM
     Route: 042
     Dates: start: 20230726, end: 202310
  2. VINCRISTINE SULFATE [Suspect]
     Active Substance: VINCRISTINE SULFATE
     Indication: Anaplastic large cell lymphoma T- and null-cell types
     Dosage: 1 MILLIGRAM
     Route: 065
     Dates: start: 20230627
  3. CYCLOPHOSPHAMIDE [Suspect]
     Active Substance: CYCLOPHOSPHAMIDE
     Indication: Anaplastic large cell lymphoma T- and null-cell types
     Dosage: 1000 MILLIGRAM
     Route: 065
     Dates: start: 20230627
  4. ETOPOSIDE [Suspect]
     Active Substance: ETOPOSIDE
     Indication: Anaplastic large cell lymphoma T- and null-cell types
     Dosage: 100 MILLIGRAM
     Route: 065
     Dates: start: 20230627
  5. PREDNISOLONE [Suspect]
     Active Substance: PREDNISOLONE
     Indication: Anaplastic large cell lymphoma T- and null-cell types
     Dosage: 100 MILLIGRAM
     Route: 065

REACTIONS (3)
  - Progressive multifocal leukoencephalopathy [Fatal]
  - Coma [Unknown]
  - Hypertransaminasaemia [Unknown]
